FAERS Safety Report 8286622-9 (Version None)
Quarter: 2012Q2

REPORT INFORMATION
  Report Type: 
  Country: None (occurrence: None)
  Receive Date: 20120416
  Receipt Date: 20120328
  Transmission Date: 20120825
  Serious: Yes (Other)
  Sender: FDA-Public Use
  Company Number: GB-JNJFOC-20120406059

PATIENT
  Age: 29 Year
  Sex: Male

DRUGS (2)
  1. XEPLION [Suspect]
     Indication: PSYCHOTIC DISORDER
     Route: 030
  2. XEPLION [Suspect]
     Route: 030

REACTIONS (2)
  - DEPRESSION [None]
  - DELUSION [None]
